FAERS Safety Report 8202923-4 (Version None)
Quarter: 2012Q1

REPORT INFORMATION
  Report Type: 
  Country: None (occurrence: None)
  Receive Date: 20120312
  Receipt Date: 20120301
  Transmission Date: 20120608
  Serious: Yes (Disabling)
  Sender: FDA-Public Use
  Company Number: DE-ASTRAZENECA-2012SE14616

PATIENT
  Age: 65 Year
  Sex: Female

DRUGS (2)
  1. ARIMIDEX [Suspect]
     Indication: BREAST CANCER METASTATIC
     Route: 048
     Dates: start: 20111001
  2. PAMIDRONATE DISODIUM [Concomitant]
     Indication: METASTASES TO BONE
     Route: 042

REACTIONS (3)
  - IMPULSE-CONTROL DISORDER [None]
  - ASTHENIA [None]
  - DECREASED APPETITE [None]
